FAERS Safety Report 8166609-7 (Version None)
Quarter: 2012Q1

REPORT INFORMATION
  Report Type: 
  Country: None (occurrence: None)
  Receive Date: 20120227
  Receipt Date: 20110624
  Transmission Date: 20120608
  Serious: No
  Sender: FDA-Public Use
  Company Number: US-MYLANLABS-2011S1013507

PATIENT
  Age: 39 Year
  Sex: Female

DRUGS (5)
  1. AMNESTEEM [Suspect]
     Indication: ACNE CYSTIC
     Dates: start: 20110101, end: 20110101
  2. AMNESTEEM [Suspect]
     Dates: start: 20110101, end: 20110101
  3. AMNESTEEM [Suspect]
     Dates: start: 20110101
  4. AMNESTEEM [Suspect]
     Dates: start: 20110101, end: 20110101
  5. AMNESTEEM [Suspect]
     Dates: start: 20110101, end: 20110101

REACTIONS (1)
  - LYMPHADENOPATHY [None]
